FAERS Safety Report 7316825-9 (Version None)
Quarter: 2011Q1

REPORT INFORMATION
  Report Type: 
  Country: None (occurrence: None)
  Receive Date: 20110226
  Receipt Date: 20100819
  Transmission Date: 20110831
  Serious: No
  Sender: FDA-Public Use
  Company Number: US-ALLERGAN-1010754US

PATIENT
  Sex: Female

DRUGS (4)
  1. BOTOX COSMETIC [Suspect]
     Indication: SKIN WRINKLING
     Dosage: UNK
     Route: 030
  2. HYDROCODONE BITARTRATE [Concomitant]
  3. METOPROLOL SUCCINATE [Concomitant]
  4. JUVEDERM [Concomitant]

REACTIONS (3)
  - HEADACHE [None]
  - NAUSEA [None]
  - ABDOMINAL PAIN [None]
